FAERS Safety Report 17322928 (Version 1)
Quarter: 2020Q1

REPORT INFORMATION
  Report Type: Spontaneous
  Country: US (occurrence: US)
  Receive Date: 20200127
  Receipt Date: 20200127
  Transmission Date: 20200409
  Serious: No
  Sender: FDA-Public Use
  Company Number: US-ACORDA-ACO_160740_2019

PATIENT
  Sex: Female

DRUGS (4)
  1. SOLU-MEDROL [Concomitant]
     Active Substance: METHYLPREDNISOLONE SODIUM SUCCINATE
     Indication: PRODUCT USED FOR UNKNOWN INDICATION
     Dosage: UNK
     Route: 065
  2. BETASERON [Concomitant]
     Active Substance: INTERFERON BETA-1B
     Indication: PRODUCT USED FOR UNKNOWN INDICATION
     Route: 065
  3. AMPYRA [Suspect]
     Active Substance: DALFAMPRIDINE
     Indication: PRODUCT USED FOR UNKNOWN INDICATION
     Dosage: 10 MILLIGRAM, QD
     Route: 048
  4. GABAPENTIN. [Concomitant]
     Active Substance: GABAPENTIN
     Indication: PRODUCT USED FOR UNKNOWN INDICATION
     Route: 048

REACTIONS (11)
  - Gait disturbance [Not Recovered/Not Resolved]
  - Insomnia [Unknown]
  - Nocturia [Unknown]
  - Central nervous system lesion [Unknown]
  - Condition aggravated [Not Recovered/Not Resolved]
  - Muscle tightness [Unknown]
  - Multiple sclerosis [Not Recovered/Not Resolved]
  - Balance disorder [Unknown]
  - Inappropriate schedule of product administration [Unknown]
  - Fall [Unknown]
  - Fatigue [Unknown]
